FAERS Safety Report 25032497 (Version 1)
Quarter: 2025Q1

REPORT INFORMATION
  Report Type: Spontaneous
  Country: SA (occurrence: SA)
  Receive Date: 20250303
  Receipt Date: 20250303
  Transmission Date: 20250408
  Serious: Yes (Other)
  Sender: BIOVITRUM
  Company Number: SA-BIOVITRUM-2025-SA-002766

PATIENT
  Age: 50 Year
  Sex: Female

DRUGS (2)
  1. PACRITINIB [Suspect]
     Active Substance: PACRITINIB
     Indication: Myelofibrosis
     Route: 048
     Dates: start: 202411, end: 202411
  2. PACRITINIB [Suspect]
     Active Substance: PACRITINIB
     Route: 048
     Dates: start: 202412, end: 202501

REACTIONS (2)
  - Skin mass [Recovering/Resolving]
  - Systemic lupus erythematosus [Unknown]

NARRATIVE: CASE EVENT DATE: 20241101
